APPROVED DRUG PRODUCT: DALIRESP
Active Ingredient: ROFLUMILAST
Strength: 500MCG
Dosage Form/Route: TABLET;ORAL
Application: N022522 | Product #001 | TE Code: AB
Applicant: ASTRAZENECA PHARMACEUTICALS LP
Approved: Feb 28, 2011 | RLD: Yes | RS: Yes | Type: RX